FAERS Safety Report 8364170-5 (Version None)
Quarter: 2012Q2

REPORT INFORMATION
  Report Type: 
  Country: None (occurrence: None)
  Receive Date: 20120514
  Receipt Date: 20120427
  Transmission Date: 20120825
  Serious: Yes (Other)
  Sender: FDA-Public Use
  Company Number: NSR_00546_2012

PATIENT
  Sex: Female
  Weight: 54.4316 kg

DRUGS (8)
  1. TOPAMAX [Concomitant]
  2. SYMBICORT [Concomitant]
  3. ADDERALL 5 [Concomitant]
  4. PHENAZOPYRIDINE HCL TAB [Concomitant]
  5. PREDNISONE TAB [Concomitant]
  6. PROPRANOLOL [Suspect]
     Indication: MIGRAINE
     Dosage: (80 MG QD ORAL) ; (60 MG QD ORAL)
     Route: 048
     Dates: start: 20120301
  7. PROPRANOLOL [Suspect]
     Indication: MIGRAINE
     Dosage: (80 MG QD ORAL) ; (60 MG QD ORAL)
     Route: 048
     Dates: start: 20031101
  8. VENTOLIN [Concomitant]

REACTIONS (7)
  - PALPITATIONS [None]
  - CHEST DISCOMFORT [None]
  - ANXIETY [None]
  - HYPOTENSION [None]
  - RESPIRATORY DISTRESS [None]
  - DYSPNOEA [None]
  - INTENTIONAL DRUG MISUSE [None]
